FAERS Safety Report 19647890 (Version 8)
Quarter: 2022Q3

REPORT INFORMATION
  Report Type: Report from Study
  Country: DO (occurrence: DO)
  Receive Date: 20210802
  Receipt Date: 20220805
  Transmission Date: 20221027
  Serious: Yes (Hospitalization, Other)
  Sender: FDA-Public Use
  Company Number: NVSC2021DO168064

PATIENT
  Age: 39 Year
  Sex: Female
  Weight: 81 kg

DRUGS (2)
  1. SECUKINUMAB [Suspect]
     Active Substance: SECUKINUMAB
     Indication: Ankylosing spondylitis
     Dosage: 150 MG, QMO
     Route: 058
     Dates: start: 20210717
  2. SECUKINUMAB [Suspect]
     Active Substance: SECUKINUMAB
     Dosage: 150 MG, QMO
     Route: 058
     Dates: start: 20210723, end: 20211116

REACTIONS (20)
  - Fibromyalgia [Recovering/Resolving]
  - Cyst [Unknown]
  - Influenza [Recovering/Resolving]
  - Secretion discharge [Unknown]
  - Oropharyngeal pain [Unknown]
  - Headache [Unknown]
  - Abdominal discomfort [Unknown]
  - Scoliosis [Unknown]
  - Condition aggravated [Not Recovered/Not Resolved]
  - Stress [Unknown]
  - Tension [Unknown]
  - Pain [Not Recovered/Not Resolved]
  - Malaise [Unknown]
  - Discomfort [Unknown]
  - Back pain [Unknown]
  - Spinal osteoarthritis [Unknown]
  - Peripheral swelling [Not Recovered/Not Resolved]
  - Pain in extremity [Not Recovered/Not Resolved]
  - Deformity [Unknown]
  - Product dose omission issue [Unknown]

NARRATIVE: CASE EVENT DATE: 20210717
